FAERS Safety Report 5765577-2 (Version None)
Quarter: 2008Q2

REPORT INFORMATION
  Report Type: 
  Country: None (occurrence: None)
  Receive Date: 20080611
  Receipt Date: 20060221
  Transmission Date: 20081010
  Serious: Yes (Death, Hospitalization)
  Sender: FDA-Public Use
  Company Number: PHHO2006BR03315

PATIENT
  Age: 60 Year
  Sex: Male
  Weight: 110 kg

DRUGS (5)
  1. ELIDEL [Suspect]
     Indication: DERMATITIS ATOPIC
     Dosage: TWICE DAILY
     Route: 061
     Dates: start: 20050531
  2. MODURETIC 5-50 [Concomitant]
  3. FLUOXETINE HCL [Concomitant]
  4. OMEPRAZOLE [Concomitant]
  5. FLUCONAZOLE [Concomitant]

REACTIONS (5)
  - CANDIDIASIS [None]
  - COLORECTAL CANCER [None]
  - COLOSTOMY [None]
  - DISEASE PROGRESSION [None]
  - RENAL FAILURE [None]
